FAERS Safety Report 25413576 (Version 1)
Quarter: 2025Q2

REPORT INFORMATION
  Report Type: Spontaneous
  Country: MY (occurrence: MY)
  Receive Date: 20250609
  Receipt Date: 20250609
  Transmission Date: 20250717
  Serious: Yes (Hospitalization)
  Sender: MERCK SHARP & DOHME LLC
  Company Number: MY-ASTRAZENECA-202409GLO011664MY

PATIENT
  Age: 50 Year
  Sex: Female
  Weight: 51 kg

DRUGS (3)
  1. PEMBROLIZUMAB [Suspect]
     Active Substance: PEMBROLIZUMAB
     Indication: HER2 negative breast cancer
     Dosage: 200 MG, ONCE EVERY 3 WK
     Route: 050
     Dates: start: 20240702, end: 20250515
  2. PACLITAXEL [Suspect]
     Active Substance: PACLITAXEL
     Indication: HER2 negative breast cancer
     Dosage: 80 MG/M2, ONCE EVERY 3 WK
     Route: 050
     Dates: start: 20240702, end: 20241010
  3. CARBOPLATIN [Suspect]
     Active Substance: CARBOPLATIN
     Indication: HER2 negative breast cancer
     Route: 050
     Dates: start: 20240702, end: 20240912

REACTIONS (1)
  - Urinary tract infection [Recovered/Resolved]

NARRATIVE: CASE EVENT DATE: 20240928
